FAERS Safety Report 6368738-7 (Version None)
Quarter: 2009Q3

REPORT INFORMATION
  Report Type: 
  Country: None (occurrence: None)
  Receive Date: 20090916
  Receipt Date: 20090908
  Transmission Date: 20100115
  Serious: Yes (Other)
  Sender: FDA-Public Use
  Company Number: SPV1-2009-01802

PATIENT
  Age: 27 Year
  Sex: Female
  Weight: 61.2 kg

DRUGS (17)
  1. ADDERALL XR 10 [Suspect]
     Indication: ATTENTION DEFICIT/HYPERACTIVITY DISORDER
     Dosage: 30 MG, 1X/DAY:QD, ORAL;  30 MG, 3X/DAY:TID, ORAL
     Route: 048
     Dates: start: 20030101, end: 20040101
  2. ADDERALL XR 10 [Suspect]
     Indication: ATTENTION DEFICIT/HYPERACTIVITY DISORDER
     Dosage: 30 MG, 1X/DAY:QD, ORAL;  30 MG, 3X/DAY:TID, ORAL
     Route: 048
     Dates: start: 20040101, end: 20080402
  3. ADDERALL XR 10 [Suspect]
     Indication: ATTENTION DEFICIT/HYPERACTIVITY DISORDER
     Dosage: 30 MG, 1X/DAY:QD, ORAL;  30 MG, 3X/DAY:TID, ORAL
     Route: 048
     Dates: start: 20090601, end: 20090701
  4. OMEGA 3-6-9 (FISH OIL, TOCOPHEROL) [Concomitant]
  5. GINKO BILOBA (GINKGO BILOBA) [Concomitant]
  6. CYMBALTA [Concomitant]
  7. LAMICTAL [Concomitant]
  8. SYNTHROID [Concomitant]
  9. LIBRIUM /00011501/ (CHLORDIAZEPOXIDE) [Concomitant]
  10. B12 (CYANOCOBALAMIN-TANNIN COMPLEX) [Concomitant]
  11. DHEA (PRASTERONE) [Concomitant]
  12. ACIDOPHILUS (LACTOBACILLUS ACIDOPHILUS) [Concomitant]
  13. VITAMINE B6 (PYRIDOXINE HYDROCHLORIDE) [Concomitant]
  14. VITAMIN B12 [Concomitant]
  15. CALCIUM (CALCIUM) [Concomitant]
  16. MULTIVITAMIN AND MINERAL SUPPLEMENT (MINERALS NOS, VITAMINS NOS) [Concomitant]
  17. CHAMOMILE  /00512601/ (MATRICARIA RECUTITA) [Concomitant]

REACTIONS (10)
  - BIPOLAR DISORDER [None]
  - DECREASED APPETITE [None]
  - DRUG ABUSE [None]
  - INAPPROPRIATE SCHEDULE OF DRUG ADMINISTRATION [None]
  - MANIA [None]
  - OVERDOSE [None]
  - PANIC ATTACK [None]
  - SUICIDE ATTEMPT [None]
  - TREATMENT NONCOMPLIANCE [None]
  - WEIGHT DECREASED [None]
